FAERS Safety Report 8779692 (Version 1)
Quarter: 2012Q4

REPORT INFORMATION
  Report Type: 
  Country: US (occurrence: US)
  Receive Date: 20120912
  Receipt Date: 20120912
  Transmission Date: 20130627
  Serious: No
  Sender: FDA-Public Use
  Company Number: US-TEVA-354305USA

PATIENT
  Sex: Male
  Weight: 65.83 kg

DRUGS (2)
  1. QNASL [Suspect]
     Indication: RHINITIS ALLERGIC
     Dosage: 360 mcg daily
     Dates: start: 20120809
  2. ZYRTEC [Concomitant]
     Indication: HYPERSENSITIVITY

REACTIONS (1)
  - Rhinalgia [Recovered/Resolved]
